FAERS Safety Report 9230498 (Version 8)
Quarter: 2014Q2

REPORT INFORMATION
  Report Type: Report from Study
  Country: DE (occurrence: DE)
  Receive Date: 20130415
  Receipt Date: 20140410
  Transmission Date: 20141212
  Serious: Yes (Death, Other)
  Sender: FDA-Public Use
  Company Number: PHHY2013DE035355

PATIENT
  Sex: Female
  Weight: 75 kg

DRUGS (5)
  1. AFINITOR [Suspect]
     Indication: BREAST CANCER METASTATIC
     Dosage: 10 MG, QD
     Route: 048
     Dates: start: 20130124, end: 20130304
  2. AFINITOR [Suspect]
     Dosage: 10 MG, QD
     Route: 048
     Dates: start: 20130314, end: 20130410
  3. AFINITOR [Suspect]
     Dosage: 5 MG, QD
     Route: 048
     Dates: start: 20130411, end: 20130626
  4. EXEMESTANE [Suspect]
     Indication: BREAST CANCER METASTATIC
     Dosage: 25 MG, QD
     Route: 048
     Dates: start: 20130124, end: 20130626
  5. ANTIBIOTICS [Concomitant]
     Indication: BONE DISORDER

REACTIONS (7)
  - Choking [Fatal]
  - Vomiting [Fatal]
  - C-reactive protein increased [Recovered/Resolved]
  - Stomatitis [Recovered/Resolved]
  - Cough [Not Recovered/Not Resolved]
  - Pyrexia [Not Recovered/Not Resolved]
  - White blood cell count increased [Recovered/Resolved]
